FAERS Safety Report 9733003 (Version 1)
Quarter: 2013Q4

REPORT INFORMATION
  Report Type: Spontaneous
  Country: US (occurrence: US)
  Receive Date: 20131204
  Receipt Date: 20131204
  Transmission Date: 20140711
  Serious: No
  Sender: FDA-Public Use
  Company Number: US-GILEAD-2009-0021923

PATIENT
  Sex: Female
  Weight: 86.18 kg

DRUGS (10)
  1. LETAIRIS [Suspect]
     Indication: PULMONARY ARTERIAL HYPERTENSION
     Route: 048
     Dates: start: 20090220
  2. CARTIA XT [Concomitant]
  3. EDECRIN [Concomitant]
  4. PREDNISONE [Concomitant]
  5. POTASSIUM CHLORIDE [Concomitant]
  6. FOLIC ACID [Concomitant]
  7. MULTIVITAMIN [Concomitant]
  8. VITAMIN D [Concomitant]
  9. FLAX SEED OIL [Concomitant]
  10. OMEGA 3 [Concomitant]

REACTIONS (1)
  - Oedema [Not Recovered/Not Resolved]
